FAERS Safety Report 25372337 (Version 1)
Quarter: 2025Q2

REPORT INFORMATION
  Report Type: Spontaneous
  Country: US (occurrence: US)
  Receive Date: 20250529
  Receipt Date: 20250529
  Transmission Date: 20250716
  Serious: Yes (Other)
  Sender: COOPERSURGICAL
  Company Number: US-COOPERSURGICAL, INC.-2025CPS004278

PATIENT
  Age: 36 Year
  Sex: Female
  Weight: 83.9 kg

DRUGS (1)
  1. PARAGARD T 380A [Suspect]
     Active Substance: COPPER
     Indication: Contraception
     Route: 015
     Dates: start: 20081204, end: 20150309

REACTIONS (11)
  - Reproductive complication associated with device [Not Recovered/Not Resolved]
  - Hysterectomy [Recovered/Resolved]
  - Infertility female [Not Recovered/Not Resolved]
  - Device breakage [Recovered/Resolved]
  - Foreign body in reproductive tract [Recovered/Resolved]
  - Complication of device removal [Recovered/Resolved]
  - Embedded device [Recovered/Resolved]
  - Emotional disorder [Unknown]
  - Dysmenorrhoea [Recovered/Resolved]
  - Heavy menstrual bleeding [Recovered/Resolved]
  - Pelvic pain [Recovered/Resolved]

NARRATIVE: CASE EVENT DATE: 20140101
